FAERS Safety Report 21520286 (Version 1)
Quarter: 2022Q4

REPORT INFORMATION
  Report Type: Spontaneous
  Country: US (occurrence: US)
  Receive Date: 20221028
  Receipt Date: 20221028
  Transmission Date: 20230113
  Serious: No
  Sender: FDA-Public Use
  Company Number: US-Ipsen Biopharmaceuticals, Inc.-2022-29005

PATIENT
  Sex: Female

DRUGS (1)
  1. DYSPORT [Suspect]
     Active Substance: ABOBOTULINUMTOXINA
     Indication: Skin cosmetic procedure
     Dosage: DOSE NOT REPORTED
     Route: 065

REACTIONS (7)
  - Eyelid irritation [Unknown]
  - Dry skin [Unknown]
  - Erythema [Unknown]
  - Swelling face [Unknown]
  - Burning sensation [Unknown]
  - Pruritus [Unknown]
  - Drug hypersensitivity [Unknown]
